FAERS Safety Report 22182415 (Version 1)
Quarter: 2023Q2

REPORT INFORMATION
  Report Type: Report from Study
  Country: EG (occurrence: EG)
  Receive Date: 20230406
  Receipt Date: 20230406
  Transmission Date: 20230722
  Serious: Yes (Death, Life-Threatening, Hospitalization, Other)
  Sender: FDA-Public Use
  Company Number: EG-ELI_LILLY_AND_COMPANY-EG202301014209

PATIENT
  Age: 72 Year
  Sex: Female
  Weight: 74 kg

DRUGS (1)
  1. VERZENIO [Suspect]
     Active Substance: ABEMACICLIB
     Indication: Breast cancer metastatic
     Dosage: 150 MG, BID (TWICE DAILY)
     Route: 048
     Dates: start: 20220611, end: 20230119

REACTIONS (7)
  - Hepatic failure [Fatal]
  - Blood bilirubin decreased [Not Recovered/Not Resolved]
  - Hepatic enzyme increased [Not Recovered/Not Resolved]
  - Anaemia [Unknown]
  - Renal disorder [Unknown]
  - Urinary incontinence [Recovered/Resolved]
  - Urine flow decreased [Unknown]

NARRATIVE: CASE EVENT DATE: 20220901
